FAERS Safety Report 14994776 (Version 2)
Quarter: 2018Q3

REPORT INFORMATION
  Report Type: Spontaneous
  Country: US (occurrence: US)
  Receive Date: 20180611
  Receipt Date: 20180716
  Transmission Date: 20181010
  Serious: No
  Sender: FDA-Public Use
  Company Number: US-PFIZER INC-2018233792

PATIENT
  Age: 90 Year
  Sex: Male
  Weight: 81.65 kg

DRUGS (2)
  1. LATANOPROST. [Suspect]
     Active Substance: LATANOPROST
     Dosage: UNK
     Route: 047
  2. LATANOPROST. [Suspect]
     Active Substance: LATANOPROST
     Indication: GLAUCOMA
     Dosage: 1 DROP IN EACH EYE 1 TIME DAILY IN EVENING
     Route: 047

REACTIONS (3)
  - Eye disorder [Unknown]
  - Incorrect dose administered [Unknown]
  - Product dropper issue [Unknown]
